FAERS Safety Report 14984228 (Version 1)
Quarter: 2018Q2

REPORT INFORMATION
  Report Type: Report from Study
  Country: FR (occurrence: FR)
  Receive Date: 20180607
  Receipt Date: 20180607
  Transmission Date: 20180711
  Serious: Yes (Death, Hospitalization, Other)
  Sender: FDA-Public Use
  Company Number: FR-JAZZ-2017-FR-015430

PATIENT

DRUGS (4)
  1. DEFITELIO [Suspect]
     Active Substance: DEFIBROTIDE SODIUM
     Indication: PROPHYLAXIS
     Dosage: 25 MG/KG, QD
     Route: 042
     Dates: start: 20160101, end: 20160207
  2. VANCOMYCIN [Concomitant]
     Active Substance: VANCOMYCIN
     Indication: ANTIBIOTIC THERAPY
     Dosage: 460 MG, QD
     Route: 042
     Dates: start: 20160524, end: 20160603
  3. XALUPRINE [Concomitant]
     Active Substance: MERCAPTOPURINE
     Indication: PALLIATIVE CARE
     Dosage: 12 MG, QD
     Route: 048
     Dates: start: 20160408
  4. ACICLOVIR [Concomitant]
     Active Substance: ACYCLOVIR
     Indication: ANTIVIRAL TREATMENT
     Dosage: 180 MG, QD
     Route: 048
     Dates: start: 20160524, end: 20160613

REACTIONS (10)
  - Oliguria [Fatal]
  - Vomiting [Unknown]
  - Aplastic anaemia [Not Recovered/Not Resolved]
  - Diarrhoea [Not Recovered/Not Resolved]
  - Haemodynamic instability [Not Recovered/Not Resolved]
  - Acute lymphocytic leukaemia recurrent [Fatal]
  - Abdominal pain [Fatal]
  - Eyelid haematoma [Fatal]
  - Pyrexia [Not Recovered/Not Resolved]
  - Epistaxis [Fatal]

NARRATIVE: CASE EVENT DATE: 20160406
